FAERS Safety Report 4320904-8 (Version None)
Quarter: 2004Q1

REPORT INFORMATION
  Report Type: 
  Country: None (occurrence: None)
  Receive Date: 20040322
  Receipt Date: 20040312
  Transmission Date: 20041129
  Serious: Yes (Hospitalization, Other)
  Sender: FDA-Public Use
  Company Number: PHRM2004FR01167

PATIENT
  Age: 43 Year
  Sex: Male

DRUGS (8)
  1. TEGRETOL [Suspect]
     Route: 048
     Dates: end: 20040216
  2. HALDOL [Suspect]
     Route: 048
     Dates: end: 20040216
  3. TERCIAN [Suspect]
     Route: 048
     Dates: start: 20040213, end: 20040216
  4. TRANXENE [Suspect]
     Route: 048
     Dates: start: 20040213, end: 20040216
  5. PARKINANE [Suspect]
     Route: 048
     Dates: end: 20040216
  6. LEPTICUR [Suspect]
     Route: 048
     Dates: end: 20040216
  7. PHENOBARBITAL TAB [Suspect]
     Route: 048
     Dates: end: 20040216
  8. LEVOMEPROMAZINE [Concomitant]
     Dates: end: 20040213

REACTIONS (10)
  - AGITATION [None]
  - BLOOD CREATINE PHOSPHOKINASE INCREASED [None]
  - C-REACTIVE PROTEIN INCREASED [None]
  - DEPRESSED LEVEL OF CONSCIOUSNESS [None]
  - HEART RATE INCREASED [None]
  - LUNG DISORDER [None]
  - NEUROLEPTIC MALIGNANT SYNDROME [None]
  - PYREXIA [None]
  - SOMNOLENCE [None]
  - WHITE BLOOD CELL COUNT INCREASED [None]
